FAERS Safety Report 4525341-9 (Version None)
Quarter: 2004Q4

REPORT INFORMATION
  Report Type: 
  Country: None (occurrence: None)
  Receive Date: 20041213
  Receipt Date: 19951211
  Transmission Date: 20050328
  Serious: Yes (Life-Threatening, Hospitalization)
  Sender: FDA-Public Use
  Company Number: JP-MERCK-96121394

PATIENT
  Age: 7 Month
  Sex: Male
  Weight: 9 kg

DRUGS (4)
  1. ONCOVIN [Suspect]
     Indication: NEPHROBLASTOMA
     Route: 042
     Dates: start: 19920219, end: 19920219
  2. COSMEGEN [Suspect]
     Indication: NEPHROBLASTOMA
     Route: 042
     Dates: start: 19920219, end: 19920222
  3. COSMEGEN [Suspect]
     Route: 042
     Dates: start: 19920328, end: 19920401
  4. COSMEGEN [Suspect]
     Route: 042
     Dates: start: 19920522

REACTIONS (4)
  - ASCITES [None]
  - FEBRILE CONVULSION [None]
  - HAEMOTHORAX [None]
  - PLEURAL EFFUSION [None]
